FAERS Safety Report 5964635-7 (Version None)
Quarter: 2008Q4

REPORT INFORMATION
  Report Type: 
  Country: None (occurrence: None)
  Receive Date: 20081120
  Receipt Date: 20081106
  Transmission Date: 20090506
  Serious: Yes (Other)
  Sender: FDA-Public Use
  Company Number: DSU-2008-01933

PATIENT
  Age: 65 Year
  Sex: Male

DRUGS (3)
  1. OLMESARTAN MEDOXOMIL AND HYDROCHLOROTHIZIDE [Suspect]
     Indication: HYPERTENSION
     Dosage: 40/12.5 MG (QD), PER ORAL
     Route: 048
     Dates: start: 20080401, end: 20081101
  2. ALLOPURINOL [Concomitant]
  3. LIPLESS (CYPROFIBRATE) (CIPROFIBRATE) (CIPROFIBRATE) [Concomitant]

REACTIONS (3)
  - BLOOD GLUCOSE INCREASED [None]
  - THYROID DISORDER [None]
  - THYROXINE ABNORMAL [None]
